FAERS Safety Report 9456568 (Version 1)
Quarter: 2013Q3

REPORT INFORMATION
  Report Type: Spontaneous
  Country: FR (occurrence: None)
  Receive Date: 20130809
  Receipt Date: 20130809
  Transmission Date: 20140515
  Serious: Yes (Other)
  Sender: FDA-Public Use
  Company Number: 1774495

PATIENT
  Age: 65 Year
  Sex: Male

DRUGS (2)
  1. CARBOPLATIN [Suspect]
     Indication: NEOPLASM MALIGNANT
     Dates: end: 20120110
  2. ALIMTA [Concomitant]

REACTIONS (8)
  - Streptococcal infection [None]
  - Thrombocytopenia [None]
  - Anaemia [None]
  - Epistaxis [None]
  - Renal failure [None]
  - Haematotoxicity [None]
  - Petechiae [None]
  - Nephropathy toxic [None]
